FAERS Safety Report 11302273 (Version 2)
Quarter: 2015Q3

REPORT INFORMATION
  Report Type: Spontaneous
  Country: US (occurrence: US)
  Receive Date: 20150722
  Receipt Date: 20150916
  Transmission Date: 20151125
  Serious: No
  Sender: FDA-Public Use
  Company Number: US-ELI_LILLY_AND_COMPANY-US200702005790

PATIENT
  Age: 65 Year
  Sex: Female

DRUGS (16)
  1. ATENOLOL. [Concomitant]
     Active Substance: ATENOLOL
  2. FORTEO [Suspect]
     Active Substance: TERIPARATIDE
     Indication: OSTEOPOROSIS
     Dosage: UNK, UNK
     Dates: start: 200611
  3. ZANTAC [Concomitant]
     Active Substance: RANITIDINE HYDROCHLORIDE
  4. CALCIUM [Concomitant]
     Active Substance: CALCIUM
  5. FORTEO [Suspect]
     Active Substance: TERIPARATIDE
  6. SYNTHROID [Concomitant]
     Active Substance: LEVOTHYROXINE SODIUM
  7. PREVACID [Concomitant]
     Active Substance: LANSOPRAZOLE
  8. DIAZEPAM. [Concomitant]
     Active Substance: DIAZEPAM
  9. LYRICA [Concomitant]
     Active Substance: PREGABALIN
  10. METFORMIN [Concomitant]
     Active Substance: METFORMIN HYDROCHLORIDE
  11. VITAMIN D [Concomitant]
     Active Substance: CHOLECALCIFEROL
  12. PLETAL [Concomitant]
     Active Substance: CILOSTAZOL
  13. MIACALCIC [Concomitant]
     Active Substance: CALCITONIN SALMON
  14. TRAMADOL. [Concomitant]
     Active Substance: TRAMADOL
  15. FORTEO [Suspect]
     Active Substance: TERIPARATIDE
     Dosage: 20 UG, DAILY (1/D)
     Dates: start: 200611
  16. EVISTA [Suspect]
     Active Substance: RALOXIFENE HYDROCHLORIDE
     Dates: start: 2003

REACTIONS (16)
  - Osteoporosis [Unknown]
  - Injection site bruising [Unknown]
  - Fall [Not Recovered/Not Resolved]
  - Gait disturbance [Unknown]
  - Cataract [Not Recovered/Not Resolved]
  - Injection site pain [Recovered/Resolved]
  - Fall [Unknown]
  - Ligament sprain [Unknown]
  - Injection site haemorrhage [Recovered/Resolved]
  - Fall [Recovered/Resolved]
  - Injection site coldness [Unknown]
  - Compression fracture [Unknown]
  - Ligament sprain [Recovered/Resolved]
  - Ligament sprain [Not Recovered/Not Resolved]
  - Visual acuity reduced [Unknown]
  - Arthritis [Unknown]

NARRATIVE: CASE EVENT DATE: 2004
